FAERS Safety Report 4868414-3 (Version None)
Quarter: 2005Q4

REPORT INFORMATION
  Report Type: 
  Country: None (occurrence: None)
  Receive Date: 20051223
  Receipt Date: 20051207
  Transmission Date: 20060501
  Serious: Yes (Death)
  Sender: FDA-Public Use
  Company Number: US200512001850

PATIENT
  Age: 76 Year
  Sex: Male

DRUGS (2)
  1. GEMZAR [Suspect]
     Dosage: 1000 MG/M2,
     Dates: start: 20051121
  2. CARBOPLATIN [Concomitant]

REACTIONS (1)
  - DEATH [None]
